FAERS Safety Report 21803596 (Version 1)
Quarter: 2023Q1

REPORT INFORMATION
  Report Type: Spontaneous
  Country: US (occurrence: US)
  Receive Date: 20230102
  Receipt Date: 20230102
  Transmission Date: 20230418
  Serious: Yes (Other)
  Sender: FDA-Public Use
  Company Number: US-BRISTOL-MYERS SQUIBB COMPANY-2022-158028

PATIENT
  Age: 69 Year
  Sex: Male
  Weight: 90.3 kg

DRUGS (1)
  1. ABECMA [Suspect]
     Active Substance: IDECABTAGENE VICLEUCEL
     Indication: Plasma cell myeloma
     Dates: start: 20220817

REACTIONS (7)
  - Cytokine release syndrome [Unknown]
  - Pyrexia [Unknown]
  - Decreased appetite [Unknown]
  - Arthralgia [Unknown]
  - Fatigue [Unknown]
  - Agitation [Unknown]
  - Neurotoxicity [Unknown]

NARRATIVE: CASE EVENT DATE: 20220818
